FAERS Safety Report 10160725 (Version 1)
Quarter: 2014Q2

REPORT INFORMATION
  Report Type: Spontaneous
  Country: NL (occurrence: NL)
  Receive Date: 20140508
  Receipt Date: 20140508
  Transmission Date: 20141212
  Serious: Yes (Other)
  Sender: FDA-Public Use
  Company Number: NL-WATSON-2014-09354

PATIENT
  Age: 74 Year
  Sex: Female

DRUGS (2)
  1. IRBESARTAN ACTAVIS [Suspect]
     Indication: CARDIOVASCULAR DISORDER
     Dosage: 1 DF, DAILY
     Route: 048
     Dates: start: 20130513, end: 20131111
  2. DILTIAZEM MYLAN [Suspect]
     Indication: CARDIOVASCULAR DISORDER
     Dosage: 1 DF, DAILY
     Route: 048
     Dates: start: 20130513, end: 20131111

REACTIONS (6)
  - Anxiety [Recovered/Resolved]
  - Dizziness [Recovered/Resolved]
  - Tongue disorder [Recovered/Resolved]
  - Nocturia [Recovered/Resolved]
  - Dry mouth [Recovered/Resolved]
  - Therapeutic response changed [Recovered/Resolved]
